FAERS Safety Report 6465407-X (Version None)
Quarter: 2009Q4

REPORT INFORMATION
  Report Type: 
  Country: None (occurrence: None)
  Receive Date: 20091201
  Receipt Date: 20090624
  Transmission Date: 20100525
  Serious: No
  Sender: FDA-Public Use
  Company Number: US-AMGEN-KDL299405

PATIENT
  Sex: Female
  Weight: 69.2 kg

DRUGS (1)
  1. ENBREL [Suspect]
     Indication: RHEUMATOID ARTHRITIS
     Route: 058
     Dates: start: 20080708, end: 20090601

REACTIONS (14)
  - ARTHRALGIA [None]
  - EYE PRURITUS [None]
  - FATIGUE [None]
  - HEADACHE [None]
  - HYPOAESTHESIA [None]
  - INJECTION SITE ERYTHEMA [None]
  - JOINT STIFFNESS [None]
  - JOINT SWELLING [None]
  - MIGRAINE [None]
  - MUSCULOSKELETAL STIFFNESS [None]
  - NAUSEA [None]
  - PARAESTHESIA [None]
  - SOMNOLENCE [None]
  - TOOTH DISORDER [None]
